FAERS Safety Report 25422859 (Version 2)
Quarter: 2025Q2

REPORT INFORMATION
  Report Type: Spontaneous
  Country: JP (occurrence: JP)
  Receive Date: 20250611
  Receipt Date: 20250613
  Transmission Date: 20250716
  Serious: Yes (Other)
  Sender: PFIZER
  Company Number: JP-PFIZER INC-202500118402

PATIENT
  Sex: Male

DRUGS (4)
  1. MEDROL [Suspect]
     Active Substance: METHYLPREDNISOLONE
     Indication: Renal transplant
     Dates: start: 20250605, end: 20250610
  2. CELLCEPT [Suspect]
     Active Substance: MYCOPHENOLATE MOFETIL
     Dates: start: 20250605
  3. TACROLIMUS [Suspect]
     Active Substance: TACROLIMUS
     Dates: start: 20250605
  4. RITUXAN [Suspect]
     Active Substance: RITUXIMAB
     Dates: start: 20250607

REACTIONS (3)
  - Cardiomyopathy [Unknown]
  - Blood creatine phosphokinase increased [Unknown]
  - Troponin abnormal [Unknown]

NARRATIVE: CASE EVENT DATE: 20250609
